FAERS Safety Report 17237898 (Version 1)
Quarter: 2020Q1

REPORT INFORMATION
  Report Type: Spontaneous
  Country: US (occurrence: US)
  Receive Date: 20200106
  Receipt Date: 20200106
  Transmission Date: 20200409
  Serious: Yes (Other)
  Sender: FDA-Public Use
  Company Number: US-GW PHARMA-201912USGW4820

PATIENT

DRUGS (1)
  1. EPIDIOLEX [Suspect]
     Active Substance: CANNABIDIOL
     Indication: LENNOX-GASTAUT SYNDROME
     Dosage: 20 MG/KG/DAY, 840 MILLIGRAM, BID
     Route: 048
     Dates: start: 20191126

REACTIONS (5)
  - Alopecia [Not Recovered/Not Resolved]
  - Facial bones fracture [Recovered/Resolved]
  - Drug ineffective [Not Recovered/Not Resolved]
  - Atonic seizures [Recovered/Resolved]
  - Somnolence [Not Recovered/Not Resolved]

NARRATIVE: CASE EVENT DATE: 2019
